FAERS Safety Report 5296672-2 (Version None)
Quarter: 2007Q2

REPORT INFORMATION
  Report Type: 
  Country: None (occurrence: None)
  Receive Date: 20070413
  Receipt Date: 20070406
  Transmission Date: 20071010
  Serious: Yes (Death, Hospitalization, Other)
  Sender: FDA-Public Use
  Company Number: JP-PFIZER INC-2007016216

PATIENT
  Sex: Male
  Weight: 53 kg

DRUGS (16)
  1. SOLU-MEDROL [Suspect]
     Indication: RESPIRATORY FAILURE
     Route: 042
     Dates: start: 20060519, end: 20060609
  2. SOLU-MEDROL [Suspect]
     Indication: INTERSTITIAL LUNG DISEASE
  3. PREDNISOLONE [Concomitant]
  4. ALL OTHER THERAPEUTIC PRODUCTS [Concomitant]
  5. FLUCONAZOLE [Concomitant]
  6. CO-TRIMOXAZOLE [Concomitant]
  7. CARBENIN [Concomitant]
     Route: 042
     Dates: start: 20060607, end: 20060609
  8. PRODIF [Concomitant]
     Route: 042
     Dates: start: 20060607, end: 20060609
  9. LASIX [Concomitant]
     Route: 042
     Dates: start: 20060607, end: 20060607
  10. DIPRIVAN [Concomitant]
     Route: 042
     Dates: start: 20060607, end: 20060609
  11. MUSCULAX [Concomitant]
     Route: 042
     Dates: start: 20060607, end: 20060609
  12. DOPAMINE HCL [Concomitant]
     Route: 042
     Dates: start: 20060607, end: 20060609
  13. NORADRENALINE [Concomitant]
     Route: 042
     Dates: start: 20060607, end: 20060609
  14. OMEPRAL [Concomitant]
     Route: 042
     Dates: start: 20060607, end: 20060609
  15. DIGILANOGEN C [Concomitant]
     Route: 042
     Dates: start: 20060607, end: 20060608
  16. BAKTAR [Concomitant]
     Route: 048
     Dates: start: 20060607, end: 20060609

REACTIONS (6)
  - INFLAMMATION [None]
  - MULTI-ORGAN FAILURE [None]
  - RENAL FAILURE [None]
  - RESPIRATORY FAILURE [None]
  - SEPTIC SHOCK [None]
  - STRONGYLOIDIASIS [None]
